FAERS Safety Report 4512278-4 (Version None)
Quarter: 2004Q4

REPORT INFORMATION
  Report Type: 
  Country: None (occurrence: None)
  Receive Date: 20041129
  Receipt Date: 20020618
  Transmission Date: 20050328
  Serious: Yes (Disabling)
  Sender: FDA-Public Use
  Company Number: FR-GLAXOSMITHKLINE-B0271378A

PATIENT
  Age: 41 Year
  Sex: Male

DRUGS (3)
  1. TRIZIVIR [Suspect]
     Indication: HIV INFECTION
     Route: 048
     Dates: start: 20010308
  2. KALETRA [Suspect]
     Indication: HIV INFECTION
     Route: 048
     Dates: start: 20010308, end: 20011002
  3. BACTRIM [Suspect]
     Indication: HIV INFECTION
     Route: 048
     Dates: start: 20010308

REACTIONS (1)
  - OSTEONECROSIS [None]
